FAERS Safety Report 8720916 (Version 3)
Quarter: 2012Q4

REPORT INFORMATION
  Report Type: 
  Country: JP (occurrence: JP)
  Receive Date: 20120813
  Receipt Date: 20120918
  Transmission Date: 20130627
  Serious: Yes (Hospitalization)
  Sender: FDA-Public Use
  Company Number: JP-JNJFOC-20120804621

PATIENT
  Age: 75 Year
  Sex: Female

DRUGS (13)
  1. FINIBAX [Suspect]
     Indication: PYELONEPHRITIS
     Route: 041
     Dates: start: 20120721, end: 20120727
  2. CRAVIT [Suspect]
     Indication: PYELONEPHRITIS
     Route: 048
     Dates: start: 20120721, end: 20120723
  3. CRAVIT [Suspect]
     Indication: PYELONEPHRITIS
     Route: 048
     Dates: start: 20120710, end: 20120713
  4. CRAVIT [Suspect]
     Indication: VOMITING
     Route: 048
     Dates: start: 20120721, end: 20120723
  5. CRAVIT [Suspect]
     Indication: VOMITING
     Route: 048
     Dates: start: 20120710, end: 20120713
  6. CRAVIT [Suspect]
     Indication: ABDOMINAL PAIN
     Route: 048
     Dates: start: 20120710, end: 20120713
  7. CRAVIT [Suspect]
     Indication: ABDOMINAL PAIN
     Route: 048
     Dates: start: 20120721, end: 20120723
  8. CEFMETAZON [Suspect]
     Indication: PYELONEPHRITIS
     Route: 041
     Dates: start: 20120714, end: 20120720
  9. CALSLOT [Concomitant]
     Indication: PRODUCT USED FOR UNKNOWN INDICATION
     Route: 065
  10. MEVALOTIN [Concomitant]
     Indication: PRODUCT USED FOR UNKNOWN INDICATION
     Route: 065
  11. DIOVAN [Concomitant]
     Indication: PRODUCT USED FOR UNKNOWN INDICATION
     Route: 065
  12. DEPAS [Concomitant]
     Indication: PRODUCT USED FOR UNKNOWN INDICATION
     Route: 065
  13. TAKEPRON [Concomitant]
     Indication: GASTRIC ULCER
     Route: 065
     Dates: start: 20120714, end: 20120717

REACTIONS (3)
  - Respiratory failure [Recovered/Resolved]
  - Lung disorder [Recovered/Resolved]
  - Eosinophil count increased [Recovered/Resolved]
